FAERS Safety Report 6918562-9 (Version None)
Quarter: 2010Q3

REPORT INFORMATION
  Report Type: 
  Country: None (occurrence: None)
  Receive Date: 20100811
  Receipt Date: 20100729
  Transmission Date: 20110219
  Serious: Yes (Other)
  Sender: FDA-Public Use
  Company Number: SG-BAYER-201034348GPV

PATIENT
  Age: 60 Year
  Sex: Male
  Weight: 62 kg

DRUGS (12)
  1. NEXAVAR [Suspect]
     Indication: HEPATIC NEOPLASM MALIGNANT
     Dosage: TOTAL DAILY DOSE: 800 MG  UNIT DOSE: 200 MG
     Route: 048
     Dates: start: 20100721, end: 20100726
  2. INSULATARD [Concomitant]
     Indication: DIABETES MELLITUS
     Route: 058
     Dates: start: 20100305
  3. INSULATARD [Concomitant]
     Route: 058
     Dates: start: 20100305
  4. SIMVASTATIN [Concomitant]
     Indication: HYPERLIPIDAEMIA
     Route: 048
     Dates: start: 20070515
  5. OMEPRAZOLE [Concomitant]
     Indication: PROPHYLAXIS AGAINST GASTROINTESTINAL ULCER
     Route: 048
     Dates: start: 20090901
  6. METFORMIN HCL [Concomitant]
     Indication: DIABETES MELLITUS
     Dosage: TOTAL DAILY DOSE: 1700 MG
     Route: 048
     Dates: start: 20050505
  7. FERROUS FUMARATE [Concomitant]
     Indication: IRON DEFICIENCY ANAEMIA
     Route: 048
     Dates: start: 20091124
  8. ENALAPRIL MALEATE [Concomitant]
     Indication: HYPERTENSION
     Dosage: TOTAL DAILY DOSE: 30 MG
     Route: 048
     Dates: start: 20071030
  9. ATENOLO [Concomitant]
     Indication: HYPERTENSION
     Route: 048
     Dates: start: 20080123
  10. ASPIRIN [Concomitant]
     Indication: CEREBROVASCULAR ACCIDENT PROPHYLAXIS
     Route: 048
     Dates: start: 20070215
  11. AMLODIPINE [Concomitant]
     Indication: HYPERTENSION
     Route: 048
     Dates: start: 20081124
  12. NEUROBION [Concomitant]
     Indication: MEDICAL DIET
     Route: 048
     Dates: start: 20090708

REACTIONS (1)
  - DEAFNESS BILATERAL [None]
